FAERS Safety Report 21339145 (Version 1)
Quarter: 2022Q3

REPORT INFORMATION
  Report Type: Spontaneous
  Country: JP (occurrence: JP)
  Receive Date: 20220915
  Receipt Date: 20220915
  Transmission Date: 20221026
  Serious: Yes (Hospitalization)
  Sender: FDA-Public Use
  Company Number: JP-NOVARTISPH-NVSJ2019JP007928

PATIENT
  Age: 38 Year
  Sex: Female

DRUGS (6)
  1. DECADRON (DEXAMETHASONE SODIUM PHOSPHATE) [Suspect]
     Active Substance: DEXAMETHASONE SODIUM PHOSPHATE
     Indication: Breast cancer stage II
     Dosage: 12 MG, CYCLIC (CYCLE REPEATED EVERY TWO WEEKS)
     Route: 065
  2. DECADRON (DEXAMETHASONE SODIUM PHOSPHATE) [Suspect]
     Active Substance: DEXAMETHASONE SODIUM PHOSPHATE
     Dosage: 4 MG, CYCLIC (DAYS 2-4) (CYCLE REPEATED EVERY TWO WEEKS, TOTAL DOSE WAS 96 MG)
     Route: 065
  3. DOCETAXEL [Suspect]
     Active Substance: DOCETAXEL
     Indication: Breast cancer stage II
     Dosage: 70 MG/M2, Q3W
     Route: 065
  4. ADRIAMYCIN [Suspect]
     Active Substance: DOXORUBICIN HYDROCHLORIDE
     Indication: Breast cancer stage II
     Dosage: 60 MG/M2, CYCLIC (CYCLE REPEATED EVERY TWO WEEKS)
     Route: 065
  5. CYCLOPHOSPHAMIDE [Suspect]
     Active Substance: CYCLOPHOSPHAMIDE
     Indication: Breast cancer stage II
     Dosage: 600 MG/M2, CYCLIC (DAY 1) (CYCLE REPEATED EVERY TWO WEEKS)
     Route: 065
  6. PEGFILGRASTIM [Suspect]
     Active Substance: PEGFILGRASTIM
     Indication: Breast cancer stage II
     Dosage: UNK (DAY 2) (CYCLE REPEATED EVERY TWO WEEKS)
     Route: 065

REACTIONS (2)
  - Pneumocystis jirovecii pneumonia [Recovering/Resolving]
  - Product use in unapproved indication [Unknown]
